FAERS Safety Report 24942172 (Version 1)
Quarter: 2025Q1

REPORT INFORMATION
  Report Type: Spontaneous
  Country: EG (occurrence: EG)
  Receive Date: 20250207
  Receipt Date: 20250207
  Transmission Date: 20250409
  Serious: Yes (Life-Threatening, Hospitalization, Other)
  Sender: SANOFI AVENTIS
  Company Number: EG-SA-2025SA038707

PATIENT
  Age: 57 Year
  Sex: Male
  Weight: 70 kg

DRUGS (3)
  1. ENOXAPARIN SODIUM [Suspect]
     Active Substance: ENOXAPARIN SODIUM
     Indication: Pancreatic carcinoma
     Route: 058
     Dates: start: 20250123
  2. KEMPOXONE [Concomitant]
     Indication: Pancreaticoduodenectomy
  3. TRICHOGYL [Concomitant]
     Indication: Pancreaticoduodenectomy

REACTIONS (3)
  - Troponin increased [Recovered/Resolved]
  - Myocardial infarction [Recovered/Resolved]
  - Therapeutic product effect decreased [Recovered/Resolved]

NARRATIVE: CASE EVENT DATE: 20250127
